FAERS Safety Report 9439159 (Version 1)
Quarter: 2013Q3

REPORT INFORMATION
  Report Type: Spontaneous
  Country: US (occurrence: US)
  Receive Date: 20130802
  Receipt Date: 20130802
  Transmission Date: 20140515
  Serious: Yes (Other)
  Sender: FDA-Public Use
  Company Number: US-ASTRAZENECA-2013SE58093

PATIENT
  Age: 74 Year
  Sex: Female
  Weight: 64.4 kg

DRUGS (18)
  1. METOPROLOL SUCCINATE ER [Suspect]
     Indication: HEART RATE INCREASED
     Route: 048
     Dates: start: 201210
  2. METOPROLOL SUCCINATE ER [Suspect]
     Indication: HEART RATE INCREASED
     Dosage: ONE HALF OF 25 MG IN THE MORNING AND ONE HALF OF 25 MG TABLET IN THE EVENING
     Route: 048
     Dates: start: 201210
  3. METOPROLOL SUCCINATE ER [Suspect]
     Indication: HEART RATE INCREASED
     Dosage: ONE HALF OF 25 MG DAILY
     Route: 048
     Dates: start: 201210
  4. BRILINTA [Suspect]
     Indication: STENT PLACEMENT
     Dosage: LOADING DOSE OF 180 MG
     Route: 048
     Dates: start: 20121013, end: 20121013
  5. BRILINTA [Suspect]
     Indication: STENT PLACEMENT
     Dosage: ADMINISTERED A DOUBLE DOSE FOR THE NEXT DAY OR TWO.
     Route: 048
     Dates: start: 20121014
  6. BRILINTA [Suspect]
     Indication: STENT PLACEMENT
     Route: 048
     Dates: start: 201210
  7. UBIQUINOL [Concomitant]
     Indication: ELDERLY
     Dosage: 100 UNITS, TWO TIMES A DAY
  8. VITAMIN D3 [Concomitant]
     Indication: VITAMIN SUPPLEMENTATION
     Dosage: DAILY
  9. LIVALO [Concomitant]
     Indication: STENT PLACEMENT
  10. SALMON OIL [Concomitant]
     Indication: SUPPLEMENTATION THERAPY
     Dosage: 1000 U, DAILY
  11. MULTIVITAMIN [Concomitant]
     Indication: VITAMIN SUPPLEMENTATION
     Dosage: DAILY
  12. DEXILANT [Concomitant]
     Indication: DIVERTICULUM
  13. NEW CHAPTER BONE STRENGTH WITH CALCIUM AND MAGNESIUM [Concomitant]
     Indication: MINERAL SUPPLEMENTATION
     Dosage: DAILY
  14. VITAMIN B STRESS WITH VITAMIN C [Concomitant]
     Indication: VITAMIN SUPPLEMENTATION
  15. TART CHERRY [Concomitant]
     Indication: PHYTOTHERAPY
  16. BLUEBERRY [Concomitant]
     Indication: PHYTOTHERAPY
  17. BABY ASPIRIN [Concomitant]
  18. VITAMIN E [Concomitant]
     Dosage: 1000 U

REACTIONS (15)
  - Thrombosis in device [Recovered/Resolved]
  - Carotid artery occlusion [Unknown]
  - Panic attack [Not Recovered/Not Resolved]
  - Cardiac disorder [Recovered/Resolved]
  - Arthropathy [Unknown]
  - Vascular occlusion [Unknown]
  - Drug intolerance [Recovered/Resolved]
  - Lung disorder [Not Recovered/Not Resolved]
  - Hypotension [Recovered/Resolved]
  - Palpitations [Not Recovered/Not Resolved]
  - Dyspnoea [Not Recovered/Not Resolved]
  - Dizziness [Not Recovered/Not Resolved]
  - Off label use [Recovered/Resolved]
  - Off label use [Not Recovered/Not Resolved]
  - Drug dose omission [Unknown]
